FAERS Safety Report 6866041-X (Version None)
Quarter: 2010Q2

REPORT INFORMATION
  Report Type: 
  Country: None (occurrence: None)
  Receive Date: 20100601
  Receipt Date: 20100524
  Transmission Date: 20101027
  Serious: No
  Sender: FDA-Public Use
  Company Number: 2010-00461

PATIENT
  Sex: Female

DRUGS (1)
  1. ZICAM ALLERGY RELIEF GEL SWABS [Suspect]

REACTIONS (4)
  - ANOSMIA [None]
  - NASAL DRYNESS [None]
  - SCAB [None]
  - SKIN CHAPPED [None]
